FAERS Safety Report 11459170 (Version 4)
Quarter: 2015Q3

REPORT INFORMATION
  Report Type: Spontaneous
  Country: BE (occurrence: BE)
  Receive Date: 20150904
  Receipt Date: 20150930
  Transmission Date: 20151125
  Serious: Yes (Hospitalization, Other)
  Sender: FDA-Public Use
  Company Number: BE-GILEAD-2015-0164791

PATIENT
  Age: 10 Year
  Sex: Male
  Weight: 23.4 kg

DRUGS (10)
  1. SOVALDI [Suspect]
     Active Substance: SOFOSBUVIR
     Indication: HEPATITIS C
     Dosage: 400 MG, UNK
     Route: 048
     Dates: start: 20150817
  2. XALATAN [Concomitant]
     Active Substance: LATANOPROST
  3. EUCERIN                            /00021201/ [Concomitant]
     Active Substance: SALICYLIC ACID
  4. ZEFFIX [Concomitant]
     Active Substance: LAMIVUDINE
  5. AZARGA [Concomitant]
     Active Substance: BRINZOLAMIDE\TIMOLOL MALEATE
  6. DACLATASVIR DIHYDROCHLORIDE [Concomitant]
     Active Substance: DACLATASVIR DIHYDROCHLORIDE
     Indication: HEPATITIS C
     Dosage: 30 MG, UNK
     Route: 048
     Dates: start: 20150817
  7. TOBREX [Concomitant]
     Active Substance: TOBRAMYCIN
  8. ATROPINE SULFATE. [Concomitant]
     Active Substance: ATROPINE SULFATE
  9. MESALAZINE IPS [Concomitant]
  10. D-CURE [Concomitant]

REACTIONS (2)
  - Off label use [Not Recovered/Not Resolved]
  - Arthritis bacterial [Not Recovered/Not Resolved]

NARRATIVE: CASE EVENT DATE: 20150817
